FAERS Safety Report 5367416-0 (Version None)
Quarter: 2007Q2

REPORT INFORMATION
  Report Type: 
  Country: None (occurrence: None)
  Receive Date: 20070622
  Receipt Date: 20060911
  Transmission Date: 20071010
  Serious: No
  Sender: FDA-Public Use
  Company Number: US-ASTRAZENECA-2006UW17793

PATIENT
  Age: 87 Year
  Sex: Female

DRUGS (2)
  1. PULMICORT [Suspect]
     Route: 055
     Dates: start: 20010101
  2. FORADIL [Concomitant]

REACTIONS (2)
  - DRUG INEFFECTIVE [None]
  - DYSPNOEA [None]
